FAERS Safety Report 18295277 (Version 3)
Quarter: 2020Q3

REPORT INFORMATION
  Report Type: Spontaneous
  Country: JP (occurrence: JP)
  Receive Date: 20200922
  Receipt Date: 20200930
  Transmission Date: 20201103
  Serious: Yes (Other)
  Sender: FDA-Public Use
  Company Number: JP-PFIZER INC-2020359766

PATIENT
  Age: 79 Year

DRUGS (2)
  1. PACLITAXEL. [Suspect]
     Active Substance: PACLITAXEL
     Dosage: 80 MG/M2, WEEKLY
  2. PACLITAXEL. [Suspect]
     Active Substance: PACLITAXEL
     Indication: SKIN ANGIOSARCOMA
     Dosage: UNK

REACTIONS (1)
  - Neuropathy peripheral [Unknown]
